FAERS Safety Report 12544503 (Version 1)
Quarter: 2016Q3

REPORT INFORMATION
  Report Type: Spontaneous
  Country: US (occurrence: US)
  Receive Date: 20160711
  Receipt Date: 20160711
  Transmission Date: 20161109
  Serious: No
  Sender: FDA-Public Use
  Company Number: US-PFIZER INC-2016329011

PATIENT
  Age: 55 Year
  Sex: Male

DRUGS (2)
  1. SUNITINIB MALATE. [Suspect]
     Active Substance: SUNITINIB MALATE
     Indication: RENAL CANCER METASTATIC
     Dosage: 50 MG, CYCLIC (4/2 )
  2. SUNITINIB MALATE. [Suspect]
     Active Substance: SUNITINIB MALATE
     Dosage: UNK, CYCLIC (2/1)

REACTIONS (5)
  - Blood testosterone decreased [Recovering/Resolving]
  - Renal cancer metastatic [Unknown]
  - Hypothyroidism [Recovering/Resolving]
  - Disease progression [Unknown]
  - Fatigue [Unknown]

NARRATIVE: CASE EVENT DATE: 2012
